FAERS Safety Report 17711832 (Version 1)
Quarter: 2020Q2

REPORT INFORMATION
  Report Type: Spontaneous
  Country: US (occurrence: US)
  Receive Date: 20200424
  Receipt Date: 20200424
  Transmission Date: 20200714
  Serious: No
  Sender: FDA-Public Use
  Company Number: None

PATIENT
  Age: 70 Year
  Sex: Female

DRUGS (1)
  1. IBRANCE [Suspect]
     Active Substance: PALBOCICLIB
     Indication: BREAST CANCER FEMALE
     Dosage: ?          OTHER FREQUENCY:DAILY X 21 DAY;?
     Route: 048
     Dates: start: 20200403

REACTIONS (5)
  - Pruritus [None]
  - Dermatitis contact [None]
  - Lip pain [None]
  - Gingival pain [None]
  - White blood cell count decreased [None]

NARRATIVE: CASE EVENT DATE: 20200419
